FAERS Safety Report 6088474-4 (Version None)
Quarter: 2009Q1

REPORT INFORMATION
  Report Type: 
  Country: None (occurrence: None)
  Receive Date: 20090220
  Receipt Date: 20090220
  Transmission Date: 20090719
  Serious: Yes (Other)
  Sender: FDA-Public Use
  Company Number: None

PATIENT
  Age: 33 Year
  Sex: Female
  Weight: 79.3795 kg

DRUGS (1)
  1. CODEINE SUL TAB [Suspect]
     Indication: COUGH
     Dosage: 15MG  6 HRS/AS NEEDED PO
     Route: 048
     Dates: start: 20080808, end: 20080819

REACTIONS (3)
  - ABDOMINAL PAIN UPPER [None]
  - FEELING ABNORMAL [None]
  - VOMITING [None]
